FAERS Safety Report 8084743-7 (Version None)
Quarter: 2012Q1

REPORT INFORMATION
  Report Type: 
  Country: None (occurrence: None)
  Receive Date: 20120128
  Receipt Date: 20110317
  Transmission Date: 20120608
  Serious: No
  Sender: FDA-Public Use
  Company Number: US-ABBOTT-11P-163-0712432-00

PATIENT
  Age: 70 Year
  Sex: Female

DRUGS (9)
  1. ZETIA [Concomitant]
     Indication: BLOOD CHOLESTEROL
  2. FISH OIL [Concomitant]
     Indication: PRODUCT USED FOR UNKNOWN INDICATION
  3. NAPROXEN (ALEVE) [Concomitant]
     Indication: PRODUCT USED FOR UNKNOWN INDICATION
     Dosage: AS NEEDED
  4. RANITIDINE [Concomitant]
     Indication: PRODUCT USED FOR UNKNOWN INDICATION
  5. HUMIRA [Suspect]
     Indication: RHEUMATOID ARTHRITIS
     Dates: start: 20110308
  6. METOPROLOL TARTRATE [Concomitant]
     Indication: PALPITATIONS
  7. POTASSIUM [Concomitant]
     Indication: PRODUCT USED FOR UNKNOWN INDICATION
     Dosage: WHEN PATIENT REMEMBERS
  8. TRIAMTERENE [Concomitant]
     Indication: JOINT SWELLING
  9. COENZYME Q10 [Concomitant]
     Indication: PRODUCT USED FOR UNKNOWN INDICATION

REACTIONS (5)
  - OROPHARYNGEAL PAIN [None]
  - DYSPHONIA [None]
  - NAUSEA [None]
  - CHILLS [None]
  - ARTHRALGIA [None]
